FAERS Safety Report 19658387 (Version 9)
Quarter: 2023Q1

REPORT INFORMATION
  Report Type: Report from Study
  Country: US (occurrence: US)
  Receive Date: 20210805
  Receipt Date: 20230307
  Transmission Date: 20230418
  Serious: No
  Sender: FDA-Public Use
  Company Number: NVSC2021US162576

PATIENT
  Sex: Female

DRUGS (1)
  1. KESIMPTA [Suspect]
     Active Substance: OFATUMUMAB
     Indication: Product used for unknown indication
     Dosage: UNK
     Route: 065

REACTIONS (8)
  - Muscle spasms [Unknown]
  - COVID-19 [Unknown]
  - Rhinorrhoea [Unknown]
  - Chills [Unknown]
  - Nasopharyngitis [Unknown]
  - Pyrexia [Unknown]
  - Injection related reaction [Unknown]
  - Product storage error [Unknown]
